FAERS Safety Report 7603699-1 (Version None)
Quarter: 2011Q2

REPORT INFORMATION
  Report Type: 
  Country: None (occurrence: None)
  Receive Date: 20110629
  Receipt Date: 20110623
  Transmission Date: 20111010
  Serious: Yes (Other)
  Sender: FDA-Public Use
  Company Number: B0728053A

PATIENT
  Age: 15 Year
  Sex: Male

DRUGS (3)
  1. STEROID [Concomitant]
  2. ZOFRAN [Suspect]
     Dosage: INTRAVENOUS
     Route: 042
  3. COLASPASE (FORMULATION UNKNOWN) (ASPARAGINASE) [Suspect]
     Indication: LYMPHOCYTIC LEUKAEMIA
     Dosage: 10000 UNIT / INTRAVENOUS
     Route: 042

REACTIONS (1)
  - METABOLIC ENCEPHALOPATHY [None]
